FAERS Safety Report 15195923 (Version 5)
Quarter: 2020Q2

REPORT INFORMATION
  Report Type: Spontaneous
  Country: US (occurrence: US)
  Receive Date: 20180725
  Receipt Date: 20200619
  Transmission Date: 20200713
  Serious: Yes (Other)
  Sender: FDA-Public Use
  Company Number: US-PFIZER INC-2018298054

PATIENT
  Age: 64 Year
  Sex: Female
  Weight: 61.22 kg

DRUGS (4)
  1. METHOTREXATE. [Concomitant]
     Active Substance: METHOTREXATE
     Indication: RHEUMATOID ARTHRITIS
     Dosage: 28 MG, WEEKLY (4 TABLETS ONCE A WEEK BY MOUTH)
     Route: 048
     Dates: start: 201410
  2. XELJANZ XR [Suspect]
     Active Substance: TOFACITINIB CITRATE
     Dosage: 11 MG, ALTERNATE DAY(11 MG EVERY OTHER DAY)
     Route: 048
  3. XELJANZ XR [Suspect]
     Active Substance: TOFACITINIB CITRATE
     Indication: RHEUMATOID ARTHRITIS
     Dosage: 11 MG, DAILY
     Route: 048
     Dates: start: 20180627
  4. XELJANZ XR [Suspect]
     Active Substance: TOFACITINIB CITRATE
     Dosage: UNK, ALTERNATE DAY(HALF THE AMOUNT SHE IS SUPPOSED TO, ALTERNATE DAY (EVERY OTHER DAY)

REACTIONS (8)
  - Feeling hot [Unknown]
  - Off label use [Unknown]
  - Body temperature increased [Not Recovered/Not Resolved]
  - Rheumatoid nodule [Unknown]
  - Intentional product misuse [Unknown]
  - Blood count abnormal [Unknown]
  - Chills [Unknown]
  - Oropharyngeal pain [Unknown]

NARRATIVE: CASE EVENT DATE: 20180720
